FAERS Safety Report 5523673-9 (Version None)
Quarter: 2007Q4

REPORT INFORMATION
  Report Type: 
  Country: None (occurrence: None)
  Receive Date: 20071121
  Receipt Date: 20071105
  Transmission Date: 20080405
  Serious: Yes (Other)
  Sender: FDA-Public Use
  Company Number: GB-ASTRAZENECA-2007SE06163

PATIENT
  Age: 61 Year
  Sex: Female

DRUGS (4)
  1. AMIAS [Suspect]
     Route: 048
     Dates: start: 20060707, end: 20061215
  2. INSULIN [Concomitant]
     Route: 065
  3. ASPIRIN [Concomitant]
     Route: 065
  4. LEVOTHYROXINE SODIUM [Concomitant]
     Route: 065

REACTIONS (1)
  - PROTEINURIA [None]
